FAERS Safety Report 26040128 (Version 4)
Quarter: 2025Q4

REPORT INFORMATION
  Report Type: Spontaneous
  Country: US (occurrence: US)
  Receive Date: 20251113
  Receipt Date: 20251222
  Transmission Date: 20260117
  Serious: No
  Sender: TOLMAR
  Company Number: US-Tolmar-TLM-2025-08057

PATIENT

DRUGS (2)
  1. ELIGARD [Suspect]
     Active Substance: LEUPROLIDE ACETATE
     Indication: Prostate cancer
     Dosage: DOSE NOT ADMINISTERED?EXPIRATION DATES: OCT-2026; SEP-2026; 30-SEP-2026?BOX LOT: 15309CUS EXP: 09/20
     Dates: start: 20251028
  2. DEVICE [Suspect]
     Active Substance: DEVICE
     Indication: Prostate cancer
     Dosage: DOSE NOT ADMINISTERED?EXPIRATION DATES: OCT-2026; SEP-2026; 30-SEP-2026?BOX LOT: 15309CUS EXP: 09/20

REACTIONS (3)
  - Product preparation error [Unknown]
  - Intercepted product preparation error [Unknown]
  - Product packaging quantity issue [Unknown]

NARRATIVE: CASE EVENT DATE: 20251028
